FAERS Safety Report 7380623-0 (Version None)
Quarter: 2011Q1

REPORT INFORMATION
  Report Type: 
  Country: None (occurrence: None)
  Receive Date: 20110329
  Receipt Date: 20110324
  Transmission Date: 20110831
  Serious: Yes (Other)
  Sender: FDA-Public Use
  Company Number: JP-PFIZER INC-2011043695

PATIENT
  Age: 45 Year
  Sex: Male

DRUGS (10)
  1. GASCON [Concomitant]
  2. REBAMIPIDE [Concomitant]
  3. RESLIN [Concomitant]
  4. SEROQUEL [Concomitant]
  5. ROHYPNOL [Concomitant]
  6. MAGNESIUM OXIDE [Concomitant]
  7. DICLOFENAC SODIUM [Concomitant]
  8. DEPAS [Concomitant]
  9. LYRICA [Suspect]
     Dosage: 150 MG, UNK
     Route: 048
     Dates: start: 20101126, end: 20101228
  10. GASTER [Concomitant]

REACTIONS (5)
  - SKIN EROSION [None]
  - OEDEMA PERIPHERAL [None]
  - CYANOSIS [None]
  - LIMB INJURY [None]
  - SKIN ULCER [None]
